FAERS Safety Report 5184156-1 (Version None)
Quarter: 2006Q4

REPORT INFORMATION
  Report Type: 
  Country: None (occurrence: None)
  Receive Date: 20061220
  Receipt Date: 20060214
  Transmission Date: 20070319
  Serious: No
  Sender: FDA-Public Use
  Company Number: US-GLAXOSMITHKLINE-A0593605A

PATIENT
  Age: 51 Year
  Sex: Female

DRUGS (1)
  1. NICODERM CQ [Suspect]
     Dates: start: 20060213, end: 20060214

REACTIONS (7)
  - ABNORMAL DREAMS [None]
  - ANXIETY [None]
  - APPLICATION SITE ERYTHEMA [None]
  - APPLICATION SITE IRRITATION [None]
  - BLEPHAROSPASM [None]
  - CHEST DISCOMFORT [None]
  - INSOMNIA [None]
